FAERS Safety Report 24842547 (Version 1)
Quarter: 2025Q1

REPORT INFORMATION
  Report Type: Other
  Country: AU (occurrence: AU)
  Receive Date: 20250115
  Receipt Date: 20250115
  Transmission Date: 20250409
  Serious: Yes (Other)
  Sender: LUPIN
  Company Number: None

PATIENT
  Sex: Female

DRUGS (1)
  1. ROSUVASTATIN [Suspect]
     Active Substance: ROSUVASTATIN
     Indication: Product used for unknown indication
     Route: 065

REACTIONS (11)
  - Acidosis [Unknown]
  - Acute kidney injury [Unknown]
  - Confusional state [Unknown]
  - Hypocalcaemia [Unknown]
  - Lethargy [Unknown]
  - Nausea [Unknown]
  - Rhabdomyolysis [Unknown]
  - Shock [Unknown]
  - Vomiting [Unknown]
  - Incorrect dosage administered [Unknown]
  - Product dispensing error [Unknown]
